FAERS Safety Report 6546939-2 (Version None)
Quarter: 2009Q4

REPORT INFORMATION
  Report Type: 
  Country: None (occurrence: None)
  Receive Date: 20091215
  Receipt Date: 20090917
  Transmission Date: 20100525
  Serious: Yes (Other)
  Sender: FDA-Public Use
  Company Number: FEI2009-1965

PATIENT
  Age: 37 Year
  Sex: Female
  Weight: 53.978 kg

DRUGS (3)
  1. INTRAUTERINE COPPER CONTRACEPTIVE [Suspect]
     Indication: CONTRACEPTION
     Dosage: INTRA-UTERINE
     Route: 015
     Dates: start: 20090915, end: 20090915
  2. IBUPROFEN [Concomitant]
  3. CYTOTEC [Concomitant]

REACTIONS (7)
  - DEPRESSED LEVEL OF CONSCIOUSNESS [None]
  - DIZZINESS [None]
  - HYPOTENSION [None]
  - PALLOR [None]
  - POOR PERIPHERAL CIRCULATION [None]
  - SYNCOPE [None]
  - UTERINE SPASM [None]
